FAERS Safety Report 9311341 (Version 2)
Quarter: 2013Q2

REPORT INFORMATION
  Report Type: Spontaneous
  Country: US (occurrence: US)
  Receive Date: 20130528
  Receipt Date: 20130610
  Transmission Date: 20140414
  Serious: Yes (Hospitalization, Other)
  Sender: FDA-Public Use
  Company Number: US-PFIZER INC-2013161269

PATIENT
  Sex: Male

DRUGS (2)
  1. NEURONTIN [Suspect]
     Dosage: UNK
  2. GEODON [Suspect]
     Dosage: UNK

REACTIONS (6)
  - Drug abuser [Unknown]
  - Epilepsy [Unknown]
  - Mental disorder [Unknown]
  - Hallucination, auditory [Unknown]
  - Back disorder [Unknown]
  - Drug ineffective [Unknown]
